FAERS Safety Report 8775048 (Version 2)
Quarter: 2012Q4

REPORT INFORMATION
  Report Type: Report from Study
  Country: CA (occurrence: CA)
  Receive Date: 20120910
  Receipt Date: 20121123
  Transmission Date: 20130627
  Serious: Yes (Hospitalization)
  Sender: FDA-Public Use
  Company Number: CA-JNJFOC-20120814955

PATIENT
  Age: 41 Year
  Sex: Male
  Weight: 83 kg

DRUGS (3)
  1. REMICADE [Suspect]
     Indication: CROHN^S DISEASE
     Route: 042
     Dates: start: 201010
  2. REMICADE [Suspect]
     Indication: CROHN^S DISEASE
     Route: 042
  3. REMICADE [Suspect]
     Indication: CROHN^S DISEASE
     Route: 042
     Dates: start: 201204

REACTIONS (5)
  - Crohn^s disease [Unknown]
  - Gastric ulcer [Unknown]
  - Intestinal ulcer [Unknown]
  - Muscle spasms [Unknown]
  - Diarrhoea [Unknown]
